FAERS Safety Report 8033080-5 (Version None)
Quarter: 2012Q1

REPORT INFORMATION
  Report Type: 
  Country: None (occurrence: None)
  Receive Date: 20120110
  Receipt Date: 20120103
  Transmission Date: 20120608
  Serious: Yes (Hospitalization, Other)
  Sender: FDA-Public Use
  Company Number: US-BAYER-2011-055254

PATIENT
  Age: 19 Year
  Sex: Female
  Weight: 70.295 kg

DRUGS (2)
  1. YAZ [Suspect]
     Indication: CONTRACEPTION
     Dosage: UNK
     Dates: start: 20061001, end: 20090701
  2. YAZ [Suspect]
     Indication: MENSTRUATION IRREGULAR

REACTIONS (6)
  - DEEP VEIN THROMBOSIS [None]
  - PAIN [None]
  - FEAR [None]
  - THROMBOSIS [None]
  - INJURY [None]
  - PULMONARY EMBOLISM [None]
